FAERS Safety Report 18115292 (Version 1)
Quarter: 2020Q3

REPORT INFORMATION
  Report Type: Spontaneous
  Country: NL (occurrence: GB)
  Receive Date: 20200805
  Receipt Date: 20200805
  Transmission Date: 20201103
  Serious: Yes (Life-Threatening, Hospitalization, Disabling, Other)
  Sender: FDA-Public Use
  Company Number: GB-FRESENIUS KABI-FK202007927

PATIENT
  Age: 79 Year
  Sex: Female

DRUGS (25)
  1. FOLIC ACID. [Concomitant]
     Active Substance: FOLIC ACID
  2. LANSOPRAZOLE. [Concomitant]
     Active Substance: LANSOPRAZOLE
  3. ROCURONIUM [Concomitant]
     Active Substance: ROCURONIUM BROMIDE
  4. POTASSIUM BICARBONATE. [Concomitant]
     Active Substance: POTASSIUM BICARBONATE
  5. DEXAMETHASONE. [Concomitant]
     Active Substance: DEXAMETHASONE
  6. PROPOFOL. [Concomitant]
     Active Substance: PROPOFOL
  7. BUPRENORPHINE. [Concomitant]
     Active Substance: BUPRENORPHINE
     Indication: PAIN
     Dates: start: 20200620, end: 20200622
  8. SODIUM PHOSPHATE MONOBASIC (ANHYDROUS) [Concomitant]
  9. POTASSIUM CHLORIDE. [Concomitant]
     Active Substance: POTASSIUM CHLORIDE
  10. FENTANYL. [Concomitant]
     Active Substance: FENTANYL
  11. MORPHINE [Concomitant]
     Active Substance: MORPHINE
  12. METARAMINOL [Concomitant]
     Active Substance: METARAMINOL
  13. ALLANTOIN/OCTENIDINE HYDROCHLORIDE [Concomitant]
  14. SUGAMMADEX [Concomitant]
     Active Substance: SUGAMMADEX
  15. ENOXAPARIN [Concomitant]
     Active Substance: ENOXAPARIN
  16. COLECALCIFEROL/CALCIUM [Concomitant]
  17. SODIUM CHLORIDE. [Concomitant]
     Active Substance: SODIUM CHLORIDE
  18. PANTOPRAZOLE [Concomitant]
     Active Substance: PANTOPRAZOLE
  19. FLUCLOXACILLIN [Concomitant]
     Active Substance: FLUCLOXACILLIN
  20. RIFAMPICIN [Concomitant]
     Active Substance: RIFAMPIN
  21. LINEZOLID (MANUFACTURER UNKNOWN) [Suspect]
     Active Substance: LINEZOLID
     Indication: EMPYEMA
     Dosage: 600 MG/12 H
     Route: 042
     Dates: start: 20200620, end: 20200622
  22. MAGNESIUM SULFATE. [Concomitant]
     Active Substance: MAGNESIUM SULFATE
  23. LACTULOSE. [Concomitant]
     Active Substance: LACTULOSE
  24. ONDANSETRON [Concomitant]
     Active Substance: ONDANSETRON
  25. PARACETAMOL [Concomitant]
     Active Substance: ACETAMINOPHEN

REACTIONS (3)
  - Blood albumin decreased [Unknown]
  - Angioedema [Not Recovered/Not Resolved]
  - Malaise [Unknown]

NARRATIVE: CASE EVENT DATE: 20200622
